FAERS Safety Report 9991449 (Version 1)
Quarter: 2014Q1

REPORT INFORMATION
  Report Type: Spontaneous
  Country: US (occurrence: US)
  Receive Date: 20140310
  Receipt Date: 20140310
  Transmission Date: 20141002
  Serious: Yes (Other)
  Sender: FDA-Public Use
  Company Number: US-ABBVIE-13P-163-1133524-00

PATIENT
  Sex: Male
  Weight: 83.99 kg

DRUGS (3)
  1. HUMIRA [Suspect]
     Indication: PSORIASIS
  2. ENBREL [Suspect]
     Indication: PSORIASIS
     Route: 058
     Dates: start: 20090623, end: 201305
  3. ENBREL [Suspect]

REACTIONS (5)
  - Respiratory tract infection [Recovered/Resolved]
  - Arthralgia [Not Recovered/Not Resolved]
  - Amnesia [Not Recovered/Not Resolved]
  - Psoriasis [Not Recovered/Not Resolved]
  - Sinusitis [Not Recovered/Not Resolved]
